FAERS Safety Report 16764732 (Version 2)
Quarter: 2019Q4

REPORT INFORMATION
  Report Type: Spontaneous
  Country: AU (occurrence: AU)
  Receive Date: 20190902
  Receipt Date: 20191007
  Transmission Date: 20200122
  Serious: Yes (Hospitalization, Other)
  Sender: FDA-Public Use
  Company Number: AU-B.I. PHARMACEUTICALS,INC./RIDGEFIELD-2019-BI-034627

PATIENT
  Age: 60 Year
  Sex: Male

DRUGS (1)
  1. JARDIAMET [Suspect]
     Active Substance: EMPAGLIFLOZIN\METFORMIN HYDROCHLORIDE
     Indication: TYPE 1 DIABETES MELLITUS
     Route: 065
     Dates: start: 201607, end: 2019

REACTIONS (4)
  - Postoperative delirium [Unknown]
  - Scrotal abscess [Recovered/Resolved]
  - Acute kidney injury [Unknown]
  - Euglycaemic diabetic ketoacidosis [Unknown]
